FAERS Safety Report 23485121 (Version 3)
Quarter: 2024Q4

REPORT INFORMATION
  Report Type: Spontaneous
  Country: US (occurrence: US)
  Receive Date: 20240206
  Receipt Date: 20241226
  Transmission Date: 20250114
  Serious: Yes (Hospitalization)
  Sender: SANOFI AVENTIS
  Company Number: US-SA-SAC20240201001303

PATIENT
  Age: 10 Year
  Sex: Female

DRUGS (2)
  1. NEXVIAZYME [Suspect]
     Active Substance: AVALGLUCOSIDASE ALFA-NGPT
     Indication: Glycogen storage disease type II
     Dosage: 1200 MG, QOW
     Route: 065
  2. NEXVIAZYME [Suspect]
     Active Substance: AVALGLUCOSIDASE ALFA-NGPT
     Dosage: 1400 MG, QW
     Route: 042
     Dates: start: 202407

REACTIONS (7)
  - Influenza [Unknown]
  - Pyrexia [Unknown]
  - Lethargy [Unknown]
  - Weight increased [Unknown]
  - Flatulence [Unknown]
  - Weight decreased [Unknown]
  - Inappropriate schedule of product administration [Unknown]

NARRATIVE: CASE EVENT DATE: 20240101
